FAERS Safety Report 22519481 (Version 1)
Quarter: 2023Q2

REPORT INFORMATION
  Report Type: Spontaneous
  Country: FR (occurrence: FR)
  Receive Date: 20230605
  Receipt Date: 20230605
  Transmission Date: 20230721
  Serious: Yes (Hospitalization, Other)
  Sender: FDA-Public Use
  Company Number: FR-SA-2023SA156416

PATIENT
  Age: 53 Year
  Sex: Female

DRUGS (5)
  1. AMOXICILLIN [Interacting]
     Active Substance: AMOXICILLIN
     Indication: Infection
     Dosage: UNK
     Route: 048
     Dates: start: 202205, end: 202205
  2. LAMOTRIGINE [Interacting]
     Active Substance: LAMOTRIGINE
     Indication: Bipolar disorder
     Dosage: 50 MILLIGRAM, QD
     Route: 048
     Dates: start: 20220428, end: 202206
  3. DEPAKOTE [Interacting]
     Active Substance: DIVALPROEX SODIUM
     Indication: Bipolar disorder
     Dosage: 2.5G, QD 1 G IN MORNING, 1.5 IN THE EVENING
     Route: 048
  4. DIAZEPAM [Concomitant]
     Active Substance: DIAZEPAM
     Dosage: UNK
     Route: 065
  5. CYAMEMAZINE [Concomitant]
     Active Substance: CYAMEMAZINE
     Dosage: UNK
     Route: 065

REACTIONS (2)
  - Drug reaction with eosinophilia and systemic symptoms [Recovered/Resolved]
  - Drug interaction [Unknown]

NARRATIVE: CASE EVENT DATE: 20220525
